FAERS Safety Report 23863931 (Version 4)
Quarter: 2024Q3

REPORT INFORMATION
  Report Type: Spontaneous
  Country: US (occurrence: US)
  Receive Date: 20240516
  Receipt Date: 20240924
  Transmission Date: 20241017
  Serious: Yes (Hospitalization)
  Sender: SANOFI AVENTIS
  Company Number: US-SA-SAC20240515000546

PATIENT
  Age: 80 Year
  Sex: Male
  Weight: 108.4 kg

DRUGS (2)
  1. DUPIXENT [Suspect]
     Active Substance: DUPILUMAB
     Indication: Dermatitis atopic
     Dosage: 300 MG, QOW
     Route: 058
     Dates: end: 20240507
  2. LIPITOR [Suspect]
     Active Substance: ATORVASTATIN CALCIUM
     Dosage: UNK

REACTIONS (10)
  - Stress [Unknown]
  - Injection site pain [Unknown]
  - Product preparation error [Unknown]
  - Bacterial infection [Unknown]
  - Diarrhoea [Unknown]
  - Flatulence [Unknown]
  - Joint swelling [Unknown]
  - Peripheral swelling [Unknown]
  - Insomnia [Unknown]
  - Overdose [Unknown]

NARRATIVE: CASE EVENT DATE: 20240101
